FAERS Safety Report 8177133-X (Version None)
Quarter: 2012Q1

REPORT INFORMATION
  Report Type: 
  Country: None (occurrence: None)
  Receive Date: 20120301
  Receipt Date: 20120224
  Transmission Date: 20120608
  Serious: Yes (Other)
  Sender: FDA-Public Use
  Company Number: JP-GLAXOSMITHKLINE-B0766576A

PATIENT
  Sex: Male

DRUGS (5)
  1. NITRAZEPAM [Concomitant]
     Indication: EPILEPSY
     Dosage: 10MG PER DAY
     Route: 048
  2. DEPAKENE [Concomitant]
     Indication: EPILEPSY
     Dosage: 400MG PER DAY
     Route: 048
     Dates: start: 20110708
  3. LAMICTAL [Suspect]
     Indication: EPILEPSY
     Route: 048
     Dates: start: 20100121, end: 20111221
  4. EPILEO PETIT MAL [Concomitant]
     Indication: EPILEPSY
     Dosage: 1200MG PER DAY
     Route: 048
  5. LAMICTAL [Suspect]
     Dosage: 400MG PER DAY
     Route: 048
     Dates: start: 20111222

REACTIONS (3)
  - DERMATOSIS [None]
  - RASH [None]
  - PSORIASIS [None]
